FAERS Safety Report 6806314-X (Version None)
Quarter: 2010Q2

REPORT INFORMATION
  Report Type: 
  Country: None (occurrence: None)
  Receive Date: 20100628
  Receipt Date: 20100628
  Transmission Date: 20101027
  Serious: Yes (Hospitalization)
  Sender: FDA-Public Use
  Company Number: None

PATIENT
  Sex: Female
  Weight: 77.1115 kg

DRUGS (1)
  1. OCELLA DRSP 3MG; EE .03MG BAYER HEALTHCARE PHARMACEUTICALS [Suspect]
     Indication: MENSTRUAL CYCLE MANAGEMENT
     Dosage: ONE TABLET ONCE DAILY PO TWO TO THREE MONTHS
     Route: 048

REACTIONS (1)
  - CHOLELITHIASIS [None]
